FAERS Safety Report 6296325-8 (Version None)
Quarter: 2009Q3

REPORT INFORMATION
  Report Type: 
  Country: None (occurrence: None)
  Receive Date: 20090804
  Receipt Date: 20090724
  Transmission Date: 20100115
  Serious: Yes (Other)
  Sender: FDA-Public Use
  Company Number: PHHY2009DE31033

PATIENT
  Age: 68 Year
  Sex: Male
  Weight: 76 kg

DRUGS (3)
  1. ZOMETA [Suspect]
     Indication: METASTASES TO BONE
     Dosage: 4 MG EVERY 4 WEEKS
     Route: 042
  2. CARBOPLATIN [Concomitant]
     Dosage: UNK
     Route: 042
     Dates: start: 20070817
  3. DOCETAXEL [Concomitant]
     Indication: PROSTATE CANCER
     Dosage: 35 MG/SQUARE METER
     Route: 042
     Dates: start: 20070817

REACTIONS (1)
  - OSTEONECROSIS [None]
